FAERS Safety Report 21005810 (Version 1)
Quarter: 2022Q2

REPORT INFORMATION
  Report Type: Spontaneous
  Country: US (occurrence: US)
  Receive Date: 20220624
  Receipt Date: 20220624
  Transmission Date: 20220721
  Serious: Yes (Other)
  Sender: FDA-Public Use
  Company Number: US-SA-SAC20220620002060

PATIENT
  Age: 70 Year

DRUGS (1)
  1. ZANTAC [Suspect]
     Active Substance: RANITIDINE HYDROCHLORIDE
     Dosage: UNK, QD
     Dates: start: 200201, end: 201910

REACTIONS (3)
  - Prostate cancer [Unknown]
  - Bladder cancer [Unknown]
  - Renal cancer [Unknown]

NARRATIVE: CASE EVENT DATE: 20040101
